FAERS Safety Report 4630319-0 (Version None)
Quarter: 2005Q2

REPORT INFORMATION
  Report Type: 
  Country: None (occurrence: None)
  Receive Date: 20050405
  Receipt Date: 20050405
  Transmission Date: 20051028
  Serious: Yes (Hospitalization)
  Sender: FDA-Public Use
  Company Number: None

PATIENT
  Age: 53 Year
  Sex: Male
  Weight: 94.8018 kg

DRUGS (8)
  1. GEMZAR [Suspect]
     Indication: PANCREATIC CARCINOMA
     Dosage: 650MG/M2 ONCE WEEKLY
     Dates: start: 20040301
  2. CELEBREX [Suspect]
     Indication: PANCREATIC CARCINOMA
     Dosage: 800MG P.O. BID
     Route: 048
     Dates: start: 20040301
  3. MIRALAX [Concomitant]
  4. PROTONIX [Concomitant]
  5. REGLAN [Concomitant]
  6. LISINOPRIL [Concomitant]
  7. SENOKOT-5 [Concomitant]
  8. OXYCODONE [Concomitant]

REACTIONS (4)
  - INTESTINAL OBSTRUCTION [None]
  - NAUSEA [None]
  - ULCER [None]
  - VOMITING [None]
